FAERS Safety Report 6659758-3 (Version None)
Quarter: 2010Q1

REPORT INFORMATION
  Report Type: 
  Country: None (occurrence: None)
  Receive Date: 20100330
  Receipt Date: 20100323
  Transmission Date: 20100710
  Serious: Yes (Death)
  Sender: FDA-Public Use
  Company Number: JP-MERCK-1003USA02779

PATIENT
  Age: 82 Year
  Sex: Male

DRUGS (15)
  1. JANUVIA [Suspect]
     Indication: TYPE 2 DIABETES MELLITUS
     Route: 048
     Dates: start: 20100209, end: 20100306
  2. ASPIRIN [Concomitant]
     Route: 065
  3. HYZAAR [Concomitant]
     Route: 048
  4. PLAVIX [Concomitant]
     Route: 065
  5. MAINTATE [Concomitant]
     Route: 065
  6. PEPCID [Concomitant]
     Route: 048
  7. SIGMART [Concomitant]
     Route: 065
  8. AMARYL [Concomitant]
     Route: 065
     Dates: end: 20100112
  9. AMARYL [Concomitant]
     Route: 065
     Dates: start: 20100112
  10. ADALAT CC [Concomitant]
     Route: 065
  11. CRESTOR [Concomitant]
     Route: 065
  12. GLYSENNID [Concomitant]
     Route: 065
  13. HALCION [Concomitant]
     Route: 065
  14. ALLOPURINOL [Concomitant]
     Route: 065
  15. FRANDOL TAPE S [Concomitant]
     Route: 065

REACTIONS (2)
  - CARDIAC FAILURE ACUTE [None]
  - SUDDEN DEATH [None]
